FAERS Safety Report 18546764 (Version 2)
Quarter: 2020Q4

REPORT INFORMATION
  Report Type: Spontaneous
  Country: CN (occurrence: CN)
  Receive Date: 20201125
  Receipt Date: 20201217
  Transmission Date: 20210114
  Serious: Yes (Other)
  Sender: FDA-Public Use
  Company Number: CN-ABBVIE-20K-035-3664647-00

PATIENT

DRUGS (2)
  1. KALETRA [Suspect]
     Active Substance: LOPINAVIR\RITONAVIR
     Indication: COVID-19
     Dosage: 200 MG/50 MG
     Route: 048
     Dates: start: 2020, end: 2020
  2. INTERFERON ALFA-2B RECOMBINANT [Concomitant]
     Active Substance: INTERFERON ALFA-2B
     Indication: COVID-19
     Dates: start: 2020

REACTIONS (2)
  - Haemolysis [Recovered/Resolved]
  - Off label use [Unknown]

NARRATIVE: CASE EVENT DATE: 2020
